FAERS Safety Report 17956808 (Version 6)
Quarter: 2021Q1

REPORT INFORMATION
  Report Type: Report from Study
  Country: US (occurrence: US)
  Receive Date: 20200629
  Receipt Date: 20210331
  Transmission Date: 20210419
  Serious: Yes (Hospitalization, Other)
  Sender: FDA-Public Use
  Company Number: US-SHIRE-US202020942

PATIENT
  Age: 71 Year
  Sex: Female
  Weight: 43 kg

DRUGS (20)
  1. TEDUGLUTIDE [Suspect]
     Active Substance: TEDUGLUTIDE
     Indication: SHORT-BOWEL SYNDROME
     Dosage: 0.222 UNIT NOT REPORTED, QD
     Route: 058
     Dates: start: 20200528, end: 20210308
  2. TEDUGLUTIDE [Suspect]
     Active Substance: TEDUGLUTIDE
     Indication: SHORT-BOWEL SYNDROME
     Dosage: 0.222 UNIT NOT REPORTED, QD
     Route: 058
     Dates: start: 20200528, end: 20210308
  3. TEDUGLUTIDE [Suspect]
     Active Substance: TEDUGLUTIDE
     Dosage: 2.225 MILLIGRAM
     Route: 058
     Dates: start: 202003, end: 202012
  4. TEDUGLUTIDE [Suspect]
     Active Substance: TEDUGLUTIDE
     Dosage: 2.225 MILLIGRAM
     Route: 058
     Dates: start: 202003, end: 202012
  5. TRAZODONE HYDROCHLORIDE. [Concomitant]
     Active Substance: TRAZODONE HYDROCHLORIDE
     Dosage: 50 MILLIGRAM
     Route: 065
  6. TEDUGLUTIDE [Suspect]
     Active Substance: TEDUGLUTIDE
     Indication: SHORT-BOWEL SYNDROME
     Dosage: 0.222 UNIT NOT REPORTED, QD
     Route: 058
     Dates: start: 20200528, end: 20210308
  7. TEDUGLUTIDE [Suspect]
     Active Substance: TEDUGLUTIDE
     Dosage: 2.225 MILLIGRAM
     Route: 058
     Dates: start: 202005, end: 202012
  8. TEDUGLUTIDE [Suspect]
     Active Substance: TEDUGLUTIDE
     Dosage: 1.5 MILLIGRAM, QD
     Route: 058
     Dates: start: 202102
  9. ATORVASTATIN CALCIUM. [Concomitant]
     Active Substance: ATORVASTATIN CALCIUM
     Dosage: 10 MILLIGRAM
     Route: 065
  10. TEDUGLUTIDE [Suspect]
     Active Substance: TEDUGLUTIDE
     Dosage: 2.225 MILLIGRAM
     Route: 058
     Dates: start: 202005, end: 202012
  11. TEDUGLUTIDE [Suspect]
     Active Substance: TEDUGLUTIDE
     Dosage: 2.225 MILLIGRAM
     Route: 058
     Dates: start: 202005, end: 202012
  12. VITAMINS NOS [Concomitant]
     Active Substance: VITAMINS
     Route: 065
  13. PROLIA [Concomitant]
     Active Substance: DENOSUMAB
     Route: 065
  14. TEDUGLUTIDE [Suspect]
     Active Substance: TEDUGLUTIDE
     Indication: SHORT-BOWEL SYNDROME
     Dosage: 0.222 UNIT NOT REPORTED, QD
     Route: 058
     Dates: start: 20200528, end: 20210308
  15. TEDUGLUTIDE [Suspect]
     Active Substance: TEDUGLUTIDE
     Dosage: 2.225 MILLIGRAM
     Route: 058
     Dates: start: 202003, end: 202012
  16. TEDUGLUTIDE [Suspect]
     Active Substance: TEDUGLUTIDE
     Dosage: 2.225 MILLIGRAM
     Route: 058
     Dates: start: 202003, end: 202012
  17. TEDUGLUTIDE [Suspect]
     Active Substance: TEDUGLUTIDE
     Dosage: 1.5 MILLIGRAM, QD
     Route: 058
     Dates: start: 202102
  18. TEDUGLUTIDE [Suspect]
     Active Substance: TEDUGLUTIDE
     Dosage: 1.5 MILLIGRAM, QD
     Route: 058
     Dates: start: 202102
  19. TEDUGLUTIDE [Suspect]
     Active Substance: TEDUGLUTIDE
     Dosage: 2.225 MILLIGRAM
     Route: 058
     Dates: start: 202005, end: 202012
  20. TEDUGLUTIDE [Suspect]
     Active Substance: TEDUGLUTIDE
     Dosage: 1.5 MILLIGRAM, QD
     Route: 058
     Dates: start: 202102

REACTIONS (15)
  - Asthenia [Unknown]
  - Biliary obstruction [Unknown]
  - Acne [Unknown]
  - Weight decreased [Not Recovered/Not Resolved]
  - Intestinal obstruction [Recovering/Resolving]
  - Nausea [Recovering/Resolving]
  - Amylase abnormal [Unknown]
  - Cholelithotomy [Unknown]
  - Weight increased [Recovering/Resolving]
  - Cholecystectomy [Unknown]
  - Flatulence [Unknown]
  - Cholecystitis [Unknown]
  - Abdominal distension [Recovering/Resolving]
  - Vomiting [Unknown]
  - Abdominal pain [Recovering/Resolving]

NARRATIVE: CASE EVENT DATE: 20200528
